FAERS Safety Report 10490440 (Version 2)
Quarter: 2014Q4

REPORT INFORMATION
  Report Type: Spontaneous
  Country: US (occurrence: US)
  Receive Date: 20141002
  Receipt Date: 20141111
  Transmission Date: 20150528
  Serious: No
  Sender: FDA-Public Use
  Company Number: US-TEVA-513304USA

PATIENT
  Age: 31 Year
  Sex: Female
  Weight: 55.84 kg

DRUGS (1)
  1. PARAGARD T380A [Suspect]
     Active Substance: COPPER
     Indication: CONTRACEPTION
     Route: 015
     Dates: start: 20140909, end: 20141001

REACTIONS (3)
  - Pain [Unknown]
  - Vulvovaginal discomfort [Unknown]
  - Pelvic discomfort [Recovered/Resolved]

NARRATIVE: CASE EVENT DATE: 20140930
